FAERS Safety Report 20363810 (Version 1)
Quarter: 2022Q1

REPORT INFORMATION
  Report Type: Spontaneous
  Country: CN (occurrence: CN)
  Receive Date: 20220121
  Receipt Date: 20220121
  Transmission Date: 20220423
  Serious: Yes (Death, Hospitalization, Other)
  Sender: FDA-Public Use
  Company Number: CN-LUPIN PHARMACEUTICALS INC.-2022-00890

PATIENT
  Age: 45 Year
  Sex: Male

DRUGS (1)
  1. IMATINIB MESYLATE [Suspect]
     Active Substance: IMATINIB MESYLATE
     Indication: Acute lymphocytic leukaemia
     Dosage: UNK
     Route: 065
     Dates: start: 2019

REACTIONS (6)
  - Thrombocytopenia [Fatal]
  - Cerebral haemorrhage [Fatal]
  - Cardiac failure acute [Recovered/Resolved]
  - Cardiomegaly [Recovered/Resolved]
  - Tricuspid valve incompetence [Recovered/Resolved]
  - Mitral valve incompetence [Recovered/Resolved]

NARRATIVE: CASE EVENT DATE: 20190101
